FAERS Safety Report 9262862 (Version 2)
Quarter: 2013Q2

REPORT INFORMATION
  Report Type: Spontaneous
  Country: VE (occurrence: VE)
  Receive Date: 20130430
  Receipt Date: 20130508
  Transmission Date: 20140414
  Serious: Yes (Other)
  Sender: FDA-Public Use
  Company Number: VE-PFIZER INC-2013132510

PATIENT
  Age: 66 Year
  Sex: Female

DRUGS (2)
  1. LIPITOR [Suspect]
     Indication: HYPERTENSION
     Dosage: 10 MG, 1X/DAY
     Route: 048
     Dates: start: 2011
  2. ATACAND [Concomitant]
     Indication: HYPERTENSION
     Dosage: 16 MG, 1X/DAY
     Route: 048
     Dates: start: 2011

REACTIONS (1)
  - Arthropathy [Recovered/Resolved]
